FAERS Safety Report 9232598 (Version 3)
Quarter: 2013Q3

REPORT INFORMATION
  Report Type: Spontaneous
  Country: ZA (occurrence: None)
  Receive Date: 20130412
  Receipt Date: 20130802
  Transmission Date: 20140515
  Serious: Yes (Death)
  Sender: FDA-Public Use
  Company Number: 1669974

PATIENT
  Age: 72 Year
  Sex: Female

DRUGS (2)
  1. DEXMEDETOMIDINE HYDROCHLORIDE [Suspect]
  2. MORPHINE [Concomitant]

REACTIONS (21)
  - Off label use [None]
  - Anaemia [None]
  - Peptic ulcer haemorrhage [None]
  - Gastric ulcer haemorrhage [None]
  - Post procedural haemorrhage [None]
  - Post procedural infection [None]
  - Atrial fibrillation [None]
  - Systemic inflammatory response syndrome [None]
  - Respiratory failure [None]
  - Sepsis [None]
  - Culture wound positive [None]
  - Enterococcus test positive [None]
  - Enterobacter test positive [None]
  - Culture urine positive [None]
  - Klebsiella test positive [None]
  - Pneumonia [None]
  - Candida test positive [None]
  - Staphylococcus test positive [None]
  - Unevaluable event [None]
  - Hypotension [None]
  - Infection [None]
